FAERS Safety Report 4494213-0 (Version None)
Quarter: 2004Q4

REPORT INFORMATION
  Report Type: 
  Country: None (occurrence: None)
  Receive Date: 20041104
  Receipt Date: 20041104
  Transmission Date: 20050328
  Serious: Yes (Hospitalization)
  Sender: FDA-Public Use
  Company Number: None

PATIENT
  Sex: Female
  Weight: 64.4108 kg

DRUGS (5)
  1. SANCTURA [Suspect]
     Indication: INCONTINENCE
     Dosage: 20 MG PO QHS
     Route: 048
     Dates: start: 20041014, end: 20041020
  2. METFORMIN [Concomitant]
  3. NAPROXEN [Concomitant]
  4. XALATAN [Concomitant]
  5. COSEPT [Concomitant]

REACTIONS (5)
  - ABDOMINAL PAIN UPPER [None]
  - CONSTIPATION [None]
  - DRY MOUTH [None]
  - FAECALOMA [None]
  - URINARY TRACT INFECTION [None]
